FAERS Safety Report 4505995-3 (Version None)
Quarter: 2004Q4

REPORT INFORMATION
  Report Type: 
  Country: None (occurrence: None)
  Receive Date: 20041025
  Receipt Date: 20040416
  Transmission Date: 20050328
  Serious: Yes (Other)
  Sender: FDA-Public Use
  Company Number: US-JNJFOC-20030906268

PATIENT
  Age: 50 Year
  Sex: Female
  Weight: 98.2038 kg

DRUGS (12)
  1. REMICADE [Suspect]
     Indication: CROHN'S DISEASE
     Dosage: 400 MG, INTRAVENOUS; 500 MG, INTRAVENOUS
     Route: 042
     Dates: start: 20030507
  2. REMICADE [Suspect]
     Indication: CROHN'S DISEASE
     Dosage: 400 MG, INTRAVENOUS; 500 MG, INTRAVENOUS
     Route: 042
     Dates: start: 20030521
  3. REMICADE [Suspect]
     Indication: CROHN'S DISEASE
     Dosage: 400 MG, INTRAVENOUS; 500 MG, INTRAVENOUS
     Route: 042
     Dates: start: 20030618
  4. 6-MP (MERCAPURINE) [Concomitant]
  5. SULFASALAZINE [Concomitant]
  6. CODEINE (CODIEINE) [Concomitant]
  7. KLOR-CON [Concomitant]
  8. DIOVAN [Concomitant]
  9. IMODIUM [Concomitant]
  10. FOLIC ACID [Concomitant]
  11. VITAMIN B12 (CYANOBALAMIN) [Concomitant]
  12. METFORMIN HCL [Concomitant]

REACTIONS (3)
  - ABSCESS [None]
  - CROHN'S DISEASE [None]
  - LYMPHOPROLIFERATIVE DISORDER [None]
